FAERS Safety Report 9423026 (Version 1)
Quarter: 2013Q3

REPORT INFORMATION
  Report Type: Spontaneous
  Country: CH (occurrence: CH)
  Receive Date: 20130718
  Receipt Date: 20130718
  Transmission Date: 20140515
  Serious: Yes (Life-Threatening)
  Sender: FDA-Public Use
  Company Number: 2013036881

PATIENT
  Age: 64 Year
  Sex: Female

DRUGS (13)
  1. PRIVIGEN (IMMUNE GLOBULIN INTRAVENOUS (HUMAN) 10% LIQUID) [Suspect]
     Indication: BRONCHITIS VIRAL
     Route: 042
     Dates: start: 20130510, end: 20130514
  2. FUROSEMIDE (FUROSEMIDE) [Suspect]
     Dates: start: 20130506, end: 20130506
  3. TAZOBAC [Suspect]
     Indication: PNEUMONIA PSEUDOMONAL
     Route: 048
     Dates: start: 20130506, end: 20130519
  4. CYCLOSPORIN (CICLOSPORIN) [Concomitant]
  5. INSULIN ZINC PROTAMINE INJECTION (INSULIN ZINC PROTAMINE INJECTION) [Concomitant]
  6. PREDNISONE (PREDNISONE) [Concomitant]
  7. ENOXAPARIN (ENOXAPARIN) [Concomitant]
  8. CO-TRIMOXAZOLE (CO-TRIMOXAZOLE) [Concomitant]
  9. CALCIUM FOLINATE (CALCIUM FOLINATE) [Concomitant]
  10. POSACONAZOLE (POSACONAZOLE) [Concomitant]
  11. VALGANCICLOVIR (VALGANCICLOVIR) [Concomitant]
  12. AZITHROMYCIN (AZITHROMYCIN) [Concomitant]
  13. RANITIDINE (RANITIDINE) [Concomitant]

REACTIONS (2)
  - Haemolytic anaemia [None]
  - Pneumonia [None]
